FAERS Safety Report 4889386-1 (Version None)
Quarter: 2006Q1

REPORT INFORMATION
  Report Type: 
  Country: None (occurrence: None)
  Receive Date: 20060124
  Receipt Date: 20050923
  Transmission Date: 20060701
  Serious: No
  Sender: FDA-Public Use
  Company Number: US-GLAXOSMITHKLINE-A0575707A

PATIENT
  Age: 44 Year
  Sex: Female

DRUGS (2)
  1. HYCAMTIN [Suspect]
     Dosage: 4MGM2 WEEKLY
     Route: 042
     Dates: start: 20050823
  2. AVASTIN [Concomitant]

REACTIONS (1)
  - DYSPNOEA [None]
